FAERS Safety Report 20772525 (Version 3)
Quarter: 2022Q2

REPORT INFORMATION
  Report Type: Spontaneous
  Country: US (occurrence: US)
  Receive Date: 20220502
  Receipt Date: 20220609
  Transmission Date: 20220720
  Serious: No
  Sender: FDA-Public Use
  Company Number: US-ORGANON-O2204USA002174

PATIENT
  Age: 35 Year
  Sex: Female
  Weight: 103.86 kg

DRUGS (1)
  1. NEXPLANON [Suspect]
     Active Substance: ETONOGESTREL
     Indication: Contraception
     Dosage: 1 IMPLANT (68MG) EVERY 3 YEARS IN LEFT ARM
     Route: 059
     Dates: start: 20201221, end: 20220425

REACTIONS (4)
  - Device breakage [Recovered/Resolved]
  - Implant site pain [Recovered/Resolved]
  - Implant site pruritus [Unknown]
  - Implant site irritation [Unknown]

NARRATIVE: CASE EVENT DATE: 20211230
